FAERS Safety Report 4438955-1 (Version None)
Quarter: 2004Q3

REPORT INFORMATION
  Report Type: 
  Country: None (occurrence: None)
  Receive Date: 20040830
  Receipt Date: 20040816
  Transmission Date: 20050211
  Serious: Yes (Other)
  Sender: FDA-Public Use
  Company Number: 2004057101

PATIENT
  Age: 57 Year
  Sex: Male

DRUGS (9)
  1. NEURONTIN [Suspect]
     Indication: ILL-DEFINED DISORDER
  2. METOPROLOL SUCCINATE [Suspect]
     Indication: ILL-DEFINED DISORDER
  3. SEVELAMER HYDROCHLORIDE (SEVELAMER HYDROCHLORIDE) [Suspect]
     Indication: ILL-DEFINED DISORDER
  4. CALCIUM ACETATE (CALCIUM ACETATE) [Concomitant]
  5. ALFACALCIDOL (ALFACALCIDOL) [Concomitant]
  6. COLECALCIFEROL (COLECALCIFEROL) [Concomitant]
  7. MADOPAR (BENSERAZIDE HYDROCHLORIDE, LEVODOPA) [Concomitant]
  8. FLUNITRAZEPAM (FLUNITRAZEPAM) [Concomitant]
  9. PHENPROCOUMON (PHENPROCOUMON) [Concomitant]

REACTIONS (3)
  - DISEASE RECURRENCE [None]
  - HYPERKERATOSIS [None]
  - MORPHOEA [None]
